FAERS Safety Report 8331648-X (Version None)
Quarter: 2012Q2

REPORT INFORMATION
  Report Type: 
  Country: None (occurrence: None)
  Receive Date: 20120502
  Receipt Date: 20111006
  Transmission Date: 20120825
  Serious: No
  Sender: FDA-Public Use
  Company Number: US-ASTRAZENECA-2011SE60568

PATIENT
  Age: 83 Year
  Sex: Female
  Weight: 73 kg

DRUGS (8)
  1. LOMOTIL [Concomitant]
     Indication: DIARRHOEA
  2. PARVASTATIN [Concomitant]
     Indication: HYPERTENSION
  3. DIAVAN [Concomitant]
     Indication: CARDIAC DISORDER
  4. METOPROLOL TARTRATE [Concomitant]
     Indication: HYPERTENSION
  5. COUMADIN [Concomitant]
     Indication: THROMBOSIS PROPHYLAXIS
  6. GABAPENTIN [Concomitant]
     Indication: MUSCLE SPASMS
  7. LAMSOPRAZOLE [Concomitant]
     Indication: ULCER
  8. BUDESONIDE [Suspect]
     Indication: COLITIS
     Route: 048
     Dates: start: 20110701, end: 20110903

REACTIONS (2)
  - DIARRHOEA [None]
  - OFF LABEL USE [None]
